FAERS Safety Report 9276279 (Version 1)
Quarter: 2013Q2

REPORT INFORMATION
  Report Type: Spontaneous
  Country: FR (occurrence: FR)
  Receive Date: 20130507
  Receipt Date: 20130507
  Transmission Date: 20140414
  Serious: Yes (Life-Threatening, Hospitalization)
  Sender: FDA-Public Use
  Company Number: FR-ABBOTT-13X-056-1084638-00

PATIENT
  Age: 61 Year
  Sex: Male

DRUGS (4)
  1. LIPANTHYL [Suspect]
     Indication: DYSLIPIDAEMIA
     Dates: start: 2008
  2. LIPANTHYL [Suspect]
     Route: 048
     Dates: start: 201110, end: 20130405
  3. CRESTOR [Suspect]
     Indication: PRODUCT USED FOR UNKNOWN INDICATION
  4. BISOCE [Concomitant]
     Indication: PRODUCT USED FOR UNKNOWN INDICATION
     Route: 048

REACTIONS (5)
  - Pancreatitis acute [Recovered/Resolved]
  - Constipation [Unknown]
  - Cholelithiasis [Unknown]
  - Transaminases increased [Unknown]
  - Gamma-glutamyltransferase increased [Unknown]
